FAERS Safety Report 15594171 (Version 3)
Quarter: 2020Q1

REPORT INFORMATION
  Report Type: Spontaneous
  Country: US (occurrence: US)
  Receive Date: 20181106
  Receipt Date: 20200116
  Transmission Date: 20200409
  Serious: No
  Sender: FDA-Public Use
  Company Number: US-PFIZER INC-2018452401

PATIENT
  Age: 74 Year
  Sex: Male

DRUGS (15)
  1. COLACE [Concomitant]
     Active Substance: DOCUSATE SODIUM
     Dosage: 100 MG, AS NEEDED (2 TIMES DAILY AS NEEDED)
     Route: 048
  2. LYRICA [Concomitant]
     Active Substance: PREGABALIN
     Dosage: 150 MG, 3X/DAY
     Route: 048
  3. FLOMAX RELIEF [Concomitant]
     Active Substance: TAMSULOSIN HYDROCHLORIDE
     Dosage: 0.8 MG, DAILY(TAKE DOSE ABOUT 30 MINUTES AFTER THE SAME MEAL EACH DAY)
     Route: 048
  4. SYNTHROID [Concomitant]
     Active Substance: LEVOTHYROXINE SODIUM
     Dosage: 88 UG, 1X/DAY [TAKE 88 MCG BY MOUTH TAKE ONCE DAILY ON AN EMPTY STOMACH]
     Route: 048
  5. HYZAAR [Concomitant]
     Active Substance: HYDROCHLOROTHIAZIDE\LOSARTAN POTASSIUM
     Dosage: UNK UNK, DAILY(100-25MG PER TABLET, TAKE ONE TABLET EVERY DAY)
     Route: 048
  6. ASPIRIN. [Concomitant]
     Active Substance: ASPIRIN
     Dosage: 81 MG, DAILY
     Route: 048
  7. NEURONTIN [Suspect]
     Active Substance: GABAPENTIN
     Dosage: UNK
     Route: 048
  8. WELLBUTRIN SR [Concomitant]
     Active Substance: BUPROPION HYDROCHLORIDE
     Dosage: 150 MG, 2X/DAY(12HR TABLET)
     Route: 048
  9. LOVAZA [Concomitant]
     Active Substance: OMEGA-3-ACID ETHYL ESTERS
     Dosage: 2 G, 2X/DAY
  10. MIRALAX [Concomitant]
     Active Substance: POLYETHYLENE GLYCOL 3350
     Indication: CONSTIPATION
     Dosage: 17 G, AS NEEDED [DAILY AS NEEDED ]
     Route: 048
  11. LEVOTHROID [Concomitant]
     Active Substance: LEVOTHYROXINE SODIUM
     Dosage: 88 UG, 1X/DAY [TAKE ONCE DAILY ON AN EMPTY STOMACH]
     Route: 048
  12. NEURONTIN [Suspect]
     Active Substance: GABAPENTIN
     Dosage: 2 DF, 4X/DAY
     Route: 048
  13. LASIX [Concomitant]
     Active Substance: FUROSEMIDE
     Dosage: 40 MG, 1X/DAY [TAKING HALF IN THE AM AND HALF IN THE AFTERNOON]
     Route: 048
  14. VITAMIN D [Concomitant]
     Active Substance: VITAMIN D NOS
     Dosage: 1000 IU, UNK
     Route: 048
  15. ALDARA [Concomitant]
     Active Substance: IMIQUIMOD
     Dosage: 5 %, UNK (APPLY TOPICALLY THREE TIMES A WEEK)
     Route: 061

REACTIONS (4)
  - Breath odour [Unknown]
  - Drug hypersensitivity [Unknown]
  - Dry mouth [Recovered/Resolved]
  - Dysgeusia [Recovered/Resolved]
